FAERS Safety Report 15672821 (Version 1)
Quarter: 2018Q4

REPORT INFORMATION
  Report Type: Spontaneous
  Country: US (occurrence: US)
  Receive Date: 20181129
  Receipt Date: 20181129
  Transmission Date: 20190205
  Serious: Yes (Other)
  Sender: FDA-Public Use
  Company Number: US-BAYER-2018-218477

PATIENT
  Sex: Male

DRUGS (1)
  1. MIRALAX [Suspect]
     Active Substance: POLYETHYLENE GLYCOL 3350
     Dosage: UNK
     Dates: start: 201811

REACTIONS (5)
  - Rectal haemorrhage [Unknown]
  - Abdominal pain upper [Unknown]
  - Incorrect route of product administration [Unknown]
  - Defaecation urgency [Unknown]
  - Constipation [None]

NARRATIVE: CASE EVENT DATE: 201811
